FAERS Safety Report 25146041 (Version 1)
Quarter: 2025Q2

REPORT INFORMATION
  Report Type: Spontaneous
  Country: GB (occurrence: GB)
  Receive Date: 20250401
  Receipt Date: 20250401
  Transmission Date: 20250716
  Serious: Yes (Other)
  Sender: ELI LILLY AND CO
  Company Number: None

PATIENT
  Age: 53 Year
  Sex: Female
  Weight: 96 kg

DRUGS (1)
  1. MOUNJARO [Suspect]
     Active Substance: TIRZEPATIDE
     Indication: Weight control
     Dosage: 15 MG, WEEKLY (1/W)
     Route: 065
     Dates: end: 20250314

REACTIONS (12)
  - Loss of consciousness [Recovered/Resolved]
  - Illness [Recovering/Resolving]
  - Rash [Recovered/Resolved]
  - Drug hypersensitivity [Recovering/Resolving]
  - Hypotension [Not Recovered/Not Resolved]
  - Diarrhoea [Recovering/Resolving]
  - Abdominal pain upper [Recovering/Resolving]
  - Tremor [Unknown]
  - Abdominal discomfort [Unknown]
  - Flatulence [Unknown]
  - Eructation [Unknown]
  - Malaise [Unknown]

NARRATIVE: CASE EVENT DATE: 20250314
